FAERS Safety Report 21364640 (Version 1)
Quarter: 2022Q3

REPORT INFORMATION
  Report Type: Spontaneous
  Country: US (occurrence: None)
  Receive Date: 20220922
  Receipt Date: 20220922
  Transmission Date: 20221027
  Serious: No
  Sender: FDA-Public Use
  Company Number: None

PATIENT
  Age: 45 Year
  Sex: Female
  Weight: 90 kg

DRUGS (1)
  1. PAXLOVID [Suspect]
     Active Substance: NIRMATRELVIR\RITONAVIR
     Indication: COVID-19
     Dosage: OTHER QUANTITY : 3 TABLET(S);?FREQUENCY : TWICE A DAY;?
     Route: 048
     Dates: start: 20220913, end: 20220918

REACTIONS (5)
  - SARS-CoV-2 test positive [None]
  - Rebound effect [None]
  - Fatigue [None]
  - Pharyngeal disorder [None]
  - Sinus disorder [None]

NARRATIVE: CASE EVENT DATE: 20220921
